FAERS Safety Report 25242767 (Version 2)
Quarter: 2025Q2

REPORT INFORMATION
  Report Type: Report from Study
  Country: US (occurrence: US)
  Receive Date: 20250427
  Receipt Date: 20250428
  Transmission Date: 20250716
  Serious: No
  Sender: MERCK SHARP & DOHME LLC
  Company Number: US-009507513-2278032

PATIENT
  Age: 43 Year
  Sex: Male
  Weight: 82.554 kg

DRUGS (5)
  1. WINREVAIR [Suspect]
     Active Substance: SOTATERCEPT-CSRK
     Indication: Pulmonary arterial hypertension
     Dosage: 0.5ML UNDER THE SKIN FOR 1 DOSE, THEN INCREASE TO 1.2ML FOR TARGET DOSE
     Route: 058
     Dates: start: 202504
  2. WINREVAIR [Suspect]
     Active Substance: SOTATERCEPT-CSRK
  3. WINREVAIR [Suspect]
     Active Substance: SOTATERCEPT-CSRK
  4. WINREVAIR [Suspect]
     Active Substance: SOTATERCEPT-CSRK
  5. OPSUMIT [Concomitant]
     Active Substance: MACITENTAN

REACTIONS (8)
  - Viral infection [Recovered/Resolved]
  - Dyspnoea exertional [Unknown]
  - Fatigue [Unknown]
  - Headache [Unknown]
  - Nausea [Recovered/Resolved]
  - Chest pain [Unknown]
  - Vomiting [Recovered/Resolved]
  - Diarrhoea [Recovered/Resolved]

NARRATIVE: CASE EVENT DATE: 20250401
